FAERS Safety Report 19328771 (Version 1)
Quarter: 2021Q2

REPORT INFORMATION
  Report Type: Spontaneous
  Country: GB (occurrence: GB)
  Receive Date: 20210528
  Receipt Date: 20210528
  Transmission Date: 20210717
  Serious: Yes (Other)
  Sender: FDA-Public Use
  Company Number: GB-009507513-2105GBR005733

PATIENT
  Sex: Female

DRUGS (2)
  1. IVERMECTIN. [Suspect]
     Active Substance: IVERMECTIN
     Indication: INFESTATION
     Dosage: UNK
     Route: 048
  2. IVERMECTIN. [Suspect]
     Active Substance: IVERMECTIN
     Dosage: UNK

REACTIONS (10)
  - Suicidal ideation [Unknown]
  - COVID-19 [Unknown]
  - Pruritus [Unknown]
  - Asthma [Unknown]
  - Illness [Unknown]
  - Insomnia [Unknown]
  - Headache [Unknown]
  - Drug ineffective [Not Recovered/Not Resolved]
  - Muscle spasms [Unknown]
  - Chest pain [Unknown]
